FAERS Safety Report 22344587 (Version 1)
Quarter: 2023Q2

REPORT INFORMATION
  Report Type: Spontaneous
  Country: JP (occurrence: JP)
  Receive Date: 20230519
  Receipt Date: 20230519
  Transmission Date: 20230722
  Serious: Yes (Other)
  Sender: FDA-Public Use
  Company Number: JP-GLAXOSMITHKLINE-JP2023JPN069607

PATIENT

DRUGS (19)
  1. ZOVIRAX [Suspect]
     Active Substance: ACYCLOVIR
     Indication: Prophylaxis
     Dosage: UNK
  2. ZOVIRAX [Suspect]
     Active Substance: ACYCLOVIR
     Dosage: 200 MG, QD
  3. ZOVIRAX [Suspect]
     Active Substance: ACYCLOVIR
     Indication: Necrotising retinitis
     Dosage: 250 MG, TID
     Route: 041
  4. VALTREX [Suspect]
     Active Substance: VALACYCLOVIR HYDROCHLORIDE
     Indication: Corneal disorder
     Dosage: UNK
  5. VALTREX [Suspect]
     Active Substance: VALACYCLOVIR HYDROCHLORIDE
     Indication: Necrotising retinitis
     Dosage: 1000 MG
  6. ACYCLOVIR [Suspect]
     Active Substance: ACYCLOVIR
     Indication: Corneal disorder
     Dosage: UNK, PRESCRIBED TWICE
  7. ACYCLOVIR [Suspect]
     Active Substance: ACYCLOVIR
     Indication: Conjunctival hyperaemia
     Dosage: UNK, QD
  8. ACYCLOVIR [Suspect]
     Active Substance: ACYCLOVIR
     Indication: Ocular hyperaemia
     Dosage: UNK, BID
  9. ACYCLOVIR [Suspect]
     Active Substance: ACYCLOVIR
     Indication: Keratic precipitates
  10. PREDNISOLONE [Concomitant]
     Active Substance: PREDNISOLONE
     Indication: Peripheral T-cell lymphoma unspecified
     Dosage: 100 MG, FOR 5 DAYS EVERY MONTH
  11. PREDNISOLONE [Concomitant]
     Active Substance: PREDNISOLONE
     Dosage: 30 MG, THEN  TAPERED DOWN
  12. CYCLOPHOSPHAMIDE [Concomitant]
     Active Substance: CYCLOPHOSPHAMIDE
     Indication: Peripheral T-cell lymphoma unspecified
     Dosage: UNK, EVERY MONTH
  13. DOXORUBICIN [Concomitant]
     Active Substance: DOXORUBICIN
     Indication: Peripheral T-cell lymphoma unspecified
     Dosage: UNK, EVERY MONTH
  14. VINCRISTINE SULFATE [Concomitant]
     Active Substance: VINCRISTINE SULFATE
     Indication: Peripheral T-cell lymphoma unspecified
     Dosage: UNK, EVERY MONTH
  15. SULFAMETHOXAZOLE\TRIMETHOPRIM [Concomitant]
     Active Substance: SULFAMETHOXAZOLE\TRIMETHOPRIM
     Indication: Prophylaxis
     Dosage: UNK
  16. FAMCICLOVIR [Concomitant]
     Active Substance: FAMCICLOVIR
     Indication: Rash
     Dosage: 1500 MG
  17. FLUOROMETHOLONE OPHTHALMIC SUSPENSION [Concomitant]
     Dosage: UNK, QD
  18. DEXAMETHASONE [Concomitant]
     Active Substance: DEXAMETHASONE
     Dosage: UNK, QID
  19. BETAMETHASONE SODIUM PHOSPHATE [Concomitant]
     Active Substance: BETAMETHASONE SODIUM PHOSPHATE
     Indication: Necrotising retinitis
     Dosage: 6 MG, QD
     Route: 041

REACTIONS (18)
  - Renal impairment [Unknown]
  - Ophthalmic herpes zoster [Unknown]
  - Scleritis [Unknown]
  - Keratic precipitates [Recovering/Resolving]
  - Necrotising retinitis [Recovering/Resolving]
  - Vitreous floaters [Unknown]
  - Corneal disorder [Recovering/Resolving]
  - Keratitis [Unknown]
  - Feeling abnormal [Unknown]
  - Rash [Unknown]
  - Eye swelling [Unknown]
  - Eye discharge [Unknown]
  - Ocular hyperaemia [Unknown]
  - Conjunctival hyperaemia [Unknown]
  - Corneal oedema [Recovering/Resolving]
  - Vitreous opacities [Unknown]
  - Iritis [Recovering/Resolving]
  - Product use in unapproved indication [Unknown]
